FAERS Safety Report 25685106 (Version 3)
Quarter: 2025Q4

REPORT INFORMATION
  Report Type: Report from Study
  Country: CA (occurrence: None)
  Receive Date: 20250815
  Receipt Date: 20251021
  Transmission Date: 20260118
  Serious: Yes (Other)
  Sender: UCB
  Company Number: CA-UCBSA-2025040744

PATIENT

DRUGS (4)
  1. BIMEKIZUMAB [Suspect]
     Active Substance: BIMEKIZUMAB
     Indication: Ankylosing spondylitis
     Dosage: 160 MILLIGRAM, EV 4 WEEKS
  2. BIMEKIZUMAB [Suspect]
     Active Substance: BIMEKIZUMAB
     Dosage: 160 MILLIGRAM, EV 2 WEEKS(QOW)
  3. WELLBUTRIN [Concomitant]
     Active Substance: BUPROPION HYDROCHLORIDE
     Indication: Product used for unknown indication
     Dosage: UNK
  4. PREDNISONE [Concomitant]
     Active Substance: PREDNISONE
     Indication: Product used for unknown indication
     Dosage: UNK

REACTIONS (3)
  - Ankylosing spondylitis [Recovering/Resolving]
  - Psoriasis [Unknown]
  - Off label use [Unknown]
